FAERS Safety Report 19976814 (Version 1)
Quarter: 2021Q4

REPORT INFORMATION
  Report Type: Spontaneous
  Country: US (occurrence: US)
  Receive Date: 20211021
  Receipt Date: 20211021
  Transmission Date: 20220303
  Serious: No
  Sender: FDA-Public Use
  Company Number: US-GLAXOSMITHKLINE-USCH2021072104

PATIENT

DRUGS (2)
  1. ADVIL MIGRAINE [Suspect]
     Active Substance: IBUPROFEN
     Indication: Headache
     Dosage: UNK
  2. ADVIL MIGRAINE [Suspect]
     Active Substance: IBUPROFEN
     Indication: Migraine

REACTIONS (3)
  - Insomnia [Unknown]
  - Product use in unapproved indication [Unknown]
  - Drug effective for unapproved indication [Unknown]
